FAERS Safety Report 11314005 (Version 1)
Quarter: 2015Q3

REPORT INFORMATION
  Report Type: Spontaneous
  Country: US (occurrence: US)
  Receive Date: 20150727
  Receipt Date: 20150727
  Transmission Date: 20151125
  Serious: Yes (Hospitalization)
  Sender: FDA-Public Use
  Company Number: US-PFIZER INC-2015243243

PATIENT
  Age: 22 Year
  Sex: Female

DRUGS (3)
  1. LIDOCAINE HCL [Suspect]
     Active Substance: LIDOCAINE HYDROCHLORIDE
     Dosage: 5 ML OF 2% (100 MG)- TOTALING 18 ML. THE TOTAL DOSE RECEIVED WAS 360 MG OR 5 MG PER KG
     Route: 058
  2. LIDOCAINE HCL [Suspect]
     Active Substance: LIDOCAINE HYDROCHLORIDE
     Dosage: 5 ML OF 2% (100 MG)- TOTALING 18 ML. THE TOTAL DOSE RECEIVED WAS 360 MG OR 5 MG PER KG
  3. LIDOCAINE HCL [Suspect]
     Active Substance: LIDOCAINE HYDROCHLORIDE
     Indication: BIOPSY BONE MARROW
     Dosage: 5 ML OF 2% (100 MG)- TOTALING 18 ML. THE TOTAL DOSE RECEIVED WAS 360 MG OR 5 MG PER KG

REACTIONS (1)
  - Hoigne^s syndrome [Recovered/Resolved]
